FAERS Safety Report 4328048-6 (Version None)
Quarter: 2004Q1

REPORT INFORMATION
  Report Type: 
  Country: None (occurrence: None)
  Receive Date: 20040325
  Receipt Date: 20040312
  Transmission Date: 20041129
  Serious: Yes (Other)
  Sender: FDA-Public Use
  Company Number: 2004203927FR

PATIENT
  Age: 75 Year
  Sex: Female

DRUGS (3)
  1. CELEBREX [Suspect]
     Indication: HUMERUS FRACTURE
     Dosage: 200 MG, QD, ORAL
     Route: 048
  2. TRAMADOL /PARACETAMOL [Suspect]
  3. LITHIUM CARBONATE [Suspect]

REACTIONS (3)
  - COMA [None]
  - DRUG INTERACTION [None]
  - OVERDOSE [None]
